FAERS Safety Report 10504308 (Version 1)
Quarter: 2014Q4

REPORT INFORMATION
  Report Type: Spontaneous
  Country: ZA (occurrence: ZA)
  Receive Date: 20141008
  Receipt Date: 20141008
  Transmission Date: 20150528
  Serious: Yes (Other)
  Sender: FDA-Public Use
  Company Number: ZA-JNJFOC-20141000969

PATIENT
  Sex: Male

DRUGS (8)
  1. STILNOX [Concomitant]
     Active Substance: ZOLPIDEM TARTRATE
     Dosage: ONCE A DAY.
     Route: 048
  2. ULTRACET [Suspect]
     Active Substance: ACETAMINOPHEN\TRAMADOL HYDROCHLORIDE
     Indication: PRODUCT USED FOR UNKNOWN INDICATION
     Dosage: TWO TIMES A DAY AS NEEDED.
     Route: 048
  3. PLASMOQUINE [Concomitant]
     Dosage: ONCE A DAY
     Route: 048
  4. SALAZOPYRIN EN [Concomitant]
     Active Substance: SULFASALAZINE
     Dosage: TWICE A DAY
     Route: 048
  5. CALCIFEROL [Concomitant]
     Active Substance: ERGOCALCIFEROL
     Dosage: 50000 UNITS ONCE PER WEEK.
     Route: 048
  6. VIMOVO [Concomitant]
     Active Substance: ESOMEPRAZOLE MAGNESIUM\NAPROXEN
     Dosage: TWO TIMES A DAY AS NEEDED BEFORE MEALS.
     Route: 048
  7. PRADAXA [Concomitant]
     Active Substance: DABIGATRAN ETEXILATE MESYLATE
     Dosage: TWICE A DAY
     Route: 048
  8. CILIFT (DEPRESSION) [Concomitant]
     Route: 048

REACTIONS (1)
  - Bladder cancer [Unknown]

NARRATIVE: CASE EVENT DATE: 2013
